FAERS Safety Report 17373411 (Version 2)
Quarter: 2020Q2

REPORT INFORMATION
  Report Type: Report from Study
  Country: DE (occurrence: DE)
  Receive Date: 20200206
  Receipt Date: 20200409
  Transmission Date: 20200713
  Serious: Yes (Hospitalization)
  Sender: FDA-Public Use
  Company Number: DE-SUN PHARMACEUTICAL INDUSTRIES LTD-2020RR-234854

PATIENT
  Age: 71 Year
  Sex: Male
  Weight: 68 kg

DRUGS (14)
  1. BISOPROLOL [Concomitant]
     Active Substance: BISOPROLOL
     Indication: PRE-EXISTING DISEASE
     Dosage: 2.5 MILLIGRAM, BID
     Route: 048
  2. ENTRESTO 24 MG/ 26 MG [Concomitant]
     Indication: PRE-EXISTING DISEASE
     Dosage: 1 APPLICATION TWICE DAILY
     Route: 048
     Dates: start: 2017
  3. FRAGMIN 5000 I.E. INJECTION [Concomitant]
     Indication: PRE-EXISTING DISEASE
     Dosage: 1 APPLICATION
     Route: 058
     Dates: start: 2018
  4. NEXIUM [Concomitant]
     Active Substance: ESOMEPRAZOLE MAGNESIUM
     Indication: PROPHYLAXIS
     Dosage: 40 MILLIGRAM, DAILY
     Route: 048
     Dates: start: 2012
  5. SEVELAMERCARBONAT [Concomitant]
     Indication: PRE-EXISTING DISEASE
     Dosage: 1 APPLICATION DAILY
     Route: 048
     Dates: start: 2018
  6. XELEVIA [Concomitant]
     Active Substance: SITAGLIPTIN PHOSPHATE
     Indication: PRE-EXISTING DISEASE
     Dosage: 25 MILLIGRAM, DAILY
     Route: 048
     Dates: start: 2016
  7. ALFACALCIDOL [Concomitant]
     Active Substance: ALFACALCIDOL
     Indication: PRE-EXISTING DISEASE
     Dosage: 0.25 MICROGRAM, DAILY
     Route: 048
     Dates: start: 2018
  8. FUROSEMID [Concomitant]
     Active Substance: FUROSEMIDE
     Indication: PRE-EXISTING DISEASE
     Dosage: 500 MILLIGRAM, BID
     Route: 048
     Dates: start: 2013
  9. ASS 100 [Concomitant]
     Active Substance: ASPIRIN
     Indication: PRE-EXISTING DISEASE
     Dosage: 100 MILLIGRAM, DAILY
     Route: 048
     Dates: start: 2016
  10. ODOMZO [Suspect]
     Active Substance: SONIDEGIB
     Indication: BASAL CELL CARCINOMA
     Dosage: 200 MILLIGRAM, DAILY
     Route: 048
     Dates: start: 20191028, end: 20191222
  11. PLAVIX [Concomitant]
     Active Substance: CLOPIDOGREL BISULFATE
     Indication: PRE-EXISTING DISEASE
     Dosage: 75 MILLIGRAM, DAILY
     Route: 048
     Dates: start: 2018
  12. L-THYROX [Concomitant]
     Active Substance: LEVOTHYROXINE SODIUM
     Indication: PRE-EXISTING DISEASE
     Dosage: 25 MICROGRAM, DAILY
     Route: 048
  13. ATORVASTATIN [Concomitant]
     Active Substance: ATORVASTATIN
     Indication: PRE-EXISTING DISEASE
     Dosage: 20 MILLIGRAM, DAILY
     Route: 048
     Dates: start: 2016
  14. MAGNESIUM VERLA TABLETS [Concomitant]
     Indication: ADVERSE EVENT
     Dosage: 400 MILLIGRAM, DAILY
     Route: 048
     Dates: start: 20200216

REACTIONS (1)
  - Left ventricular dysfunction [Recovered/Resolved with Sequelae]

NARRATIVE: CASE EVENT DATE: 20191223
